FAERS Safety Report 16373114 (Version 1)
Quarter: 2019Q2

REPORT INFORMATION
  Report Type: Spontaneous
  Country: CA (occurrence: CA)
  Receive Date: 20190530
  Receipt Date: 20190530
  Transmission Date: 20190711
  Serious: Yes (Other)
  Sender: FDA-Public Use
  Company Number: CA-TEVA-2019-CA-1057295

PATIENT
  Age: 18 Year
  Sex: Female

DRUGS (6)
  1. PERAMPANEL [Concomitant]
     Active Substance: PERAMPANEL
     Indication: GENERALISED TONIC-CLONIC SEIZURE
  2. PREGABALIN. [Concomitant]
     Active Substance: PREGABALIN
     Indication: GENERALISED TONIC-CLONIC SEIZURE
     Route: 065
  3. PHENYTOIN. [Suspect]
     Active Substance: PHENYTOIN
     Indication: PARTIAL SEIZURES
     Route: 065
  4. PREGABALIN. [Concomitant]
     Active Substance: PREGABALIN
     Indication: PARTIAL SEIZURES
  5. PHENYTOIN. [Suspect]
     Active Substance: PHENYTOIN
     Indication: GENERALISED TONIC-CLONIC SEIZURE
  6. PERAMPANEL [Concomitant]
     Active Substance: PERAMPANEL
     Indication: PARTIAL SEIZURES
     Route: 065

REACTIONS (1)
  - Neurodegenerative disorder [Unknown]
